FAERS Safety Report 4674409-5 (Version None)
Quarter: 2005Q2

REPORT INFORMATION
  Report Type: 
  Country: None (occurrence: None)
  Receive Date: 20050524
  Receipt Date: 20050512
  Transmission Date: 20051028
  Serious: Yes (Other)
  Sender: FDA-Public Use
  Company Number: 2005075127

PATIENT
  Age: 78 Year
  Sex: Male
  Weight: 54.4316 kg

DRUGS (11)
  1. ZYVOX [Suspect]
     Indication: CELLULITIS
     Dosage: 1200 MG (600 MG, BID) INTRAVENOUS
     Route: 042
     Dates: start: 20050420
  2. AMIODARONE HCL [Concomitant]
  3. ARANESP [Concomitant]
  4. ASPIRIN [Concomitant]
  5. COZAAR [Concomitant]
  6. COLACE (DOCUSATE SODIUM) [Concomitant]
  7. MEGESTROL ACETATE [Concomitant]
  8. METOPROLOL TARTRATE [Concomitant]
  9. NEXIUM [Concomitant]
  10. LORTAB [Concomitant]
  11. ZOLOFT [Concomitant]

REACTIONS (2)
  - BLOOD GLUCOSE DECREASED [None]
  - PLATELET COUNT DECREASED [None]
